FAERS Safety Report 7099145-X (Version None)
Quarter: 2010Q4

REPORT INFORMATION
  Report Type: 
  Country: None (occurrence: None)
  Receive Date: 20101112
  Receipt Date: 20101111
  Transmission Date: 20110411
  Serious: Yes (Death, Hospitalization)
  Sender: FDA-Public Use
  Company Number: Z0005515A

PATIENT
  Sex: Female
  Weight: 68 kg

DRUGS (2)
  1. LAPATINIB [Suspect]
     Dosage: 1250MG PER DAY
     Route: 048
     Dates: start: 20100714
  2. CAPECITABINE [Suspect]
     Dosage: 2000MGM2 CYCLIC
     Route: 048
     Dates: start: 20100714

REACTIONS (1)
  - HELICOBACTER GASTRITIS [None]
